FAERS Safety Report 5993659-9 (Version None)
Quarter: 2008Q4

REPORT INFORMATION
  Report Type: 
  Country: None (occurrence: None)
  Receive Date: 20081212
  Receipt Date: 20080618
  Transmission Date: 20090506
  Serious: No
  Sender: FDA-Public Use
  Company Number: US-AMGEN-KDL284165

PATIENT
  Sex: Male
  Weight: 101.7 kg

DRUGS (6)
  1. ENBREL [Suspect]
     Indication: RHEUMATOID ARTHRITIS
     Route: 058
     Dates: start: 20080421
  2. ARAVA [Concomitant]
  3. PREDNISONE TAB [Concomitant]
  4. FOLIC ACID [Concomitant]
  5. ASPIRIN [Concomitant]
  6. LORTAB [Concomitant]

REACTIONS (10)
  - BACK PAIN [None]
  - CHEST DISCOMFORT [None]
  - DYSPNOEA [None]
  - ERYTHEMA [None]
  - NODULE [None]
  - PAIN IN EXTREMITY [None]
  - PSORIASIS [None]
  - RASH [None]
  - TINEA VERSICOLOUR [None]
  - URTICARIA [None]
